FAERS Safety Report 6755297-X (Version None)
Quarter: 2010Q2

REPORT INFORMATION
  Report Type: 
  Country: None (occurrence: None)
  Receive Date: 20100604
  Receipt Date: 20100521
  Transmission Date: 20101027
  Serious: Yes (Death)
  Sender: FDA-Public Use
  Company Number: US-ASTRAZENECA-2008UW18536

PATIENT
  Age: 18496 Day
  Sex: Female
  Weight: 79.4 kg

DRUGS (5)
  1. SEROQUEL [Suspect]
     Indication: SLEEP DISORDER
     Route: 048
     Dates: start: 20040720
  2. PREVACID [Concomitant]
     Indication: GASTROOESOPHAGEAL REFLUX DISEASE
  3. WELLBUTRIN SR [Concomitant]
  4. XANAX [Concomitant]
  5. XOPENEX [Concomitant]

REACTIONS (2)
  - DEATH [None]
  - WEIGHT INCREASED [None]
